FAERS Safety Report 6848467-3 (Version None)
Quarter: 2010Q3

REPORT INFORMATION
  Report Type: 
  Country: None (occurrence: None)
  Receive Date: 20100716
  Receipt Date: 20100707
  Transmission Date: 20110219
  Serious: Yes (Death, Hospitalization)
  Sender: FDA-Public Use
  Company Number: JP-EISAI INC.-E2020-07016-SPO-JP

PATIENT
  Age: 66 Year
  Sex: Male

DRUGS (12)
  1. ARICEPT [Suspect]
     Indication: DEMENTIA
     Dosage: UNKNOWN
     Route: 048
  2. VFEND [Interacting]
     Indication: PRODUCT USED FOR UNKNOWN INDICATION
     Route: 048
     Dates: start: 20091215, end: 20091215
  3. VFEND [Interacting]
     Route: 048
     Dates: start: 20091216, end: 20091225
  4. VFEND [Interacting]
     Route: 042
     Dates: start: 20091226, end: 20100117
  5. LENDORMIN [Interacting]
     Indication: PRODUCT USED FOR UNKNOWN INDICATION
     Dosage: UNKNOWN
     Route: 048
  6. MICARDIS [Concomitant]
     Route: 048
  7. FLUITRAN [Concomitant]
     Route: 048
  8. ASPIRIN [Concomitant]
     Route: 048
  9. FLAVERIC [Concomitant]
     Route: 048
  10. MUCODYNE [Concomitant]
     Route: 048
  11. FAMOSTAGINE-D [Concomitant]
     Route: 048
  12. MEROPEN [Concomitant]
     Dates: start: 20091219, end: 20091228

REACTIONS (8)
  - BRONCHOPULMONARY ASPERGILLOSIS [None]
  - DEATH [None]
  - DIZZINESS [None]
  - DRUG INTERACTION [None]
  - EYE ROLLING [None]
  - FEELING ABNORMAL [None]
  - HICCUPS [None]
  - LIVER DISORDER [None]
